FAERS Safety Report 4426904-1 (Version None)
Quarter: 2004Q3

REPORT INFORMATION
  Report Type: 
  Country: None (occurrence: None)
  Receive Date: 20040811
  Receipt Date: 20040729
  Transmission Date: 20050211
  Serious: Yes (Hospitalization)
  Sender: FDA-Public Use
  Company Number: HQWYE686902AUG04

PATIENT
  Age: 82 Year
  Sex: Female

DRUGS (15)
  1. VENLAFAXINE HCL [Suspect]
     Indication: DEPRESSION
     Dosage: 37.5 MG 1X PER 1 DAY  ORAL  : 75 MG 1X PER 1 DAY ORAL
     Route: 048
     Dates: start: 20040709, end: 20040715
  2. VENLAFAXINE HCL [Suspect]
     Indication: DEPRESSION
     Dosage: 37.5 MG 1X PER 1 DAY  ORAL  : 75 MG 1X PER 1 DAY ORAL
     Route: 048
     Dates: start: 20040716, end: 20040718
  3. KOLANTYL (ALUMINUM HYDROXIDE/DICYCLOVERINE HYDROCHLORIDE/MAGNESIUM OXI [Concomitant]
  4. CINAL (ASCORBIC ACID/CALCIUM PANTOTHENATE) [Concomitant]
  5. NIFEDIPINE [Concomitant]
  6. LIPITOR [Concomitant]
  7. PURSENNID (SENNA LEAF) [Concomitant]
  8. SENNOSIDE A+B [Concomitant]
  9. ZOLPIDEM TARTRATE [Concomitant]
  10. HALCION [Concomitant]
  11. DOGMATIL (SULPIRIDE) [Concomitant]
  12. ALOSENN (ACHILLEA/RUBIA ROOT TINCTURE/SENNA FRUIT/SENNA LEAF/TARAXACUM [Concomitant]
  13. GASMOTIN (MOSAPRIDE CITRATE) [Concomitant]
  14. LENDORM [Concomitant]
  15. NAUZELIN (DOMPERIDONE) [Concomitant]

REACTIONS (2)
  - CONSTIPATION [None]
  - DRUG WITHDRAWAL SYNDROME [None]
